FAERS Safety Report 13158395 (Version 1)
Quarter: 2017Q1

REPORT INFORMATION
  Report Type: Spontaneous
  Country: US (occurrence: US)
  Receive Date: 20170127
  Receipt Date: 20170127
  Transmission Date: 20170428
  Serious: Yes (Hospitalization)
  Sender: FDA-Public Use
  Company Number: US-LPDUSPRD-20170034

PATIENT
  Age: 50 Year
  Sex: Female

DRUGS (1)
  1. NEOSTIGMINE METHYLSULFATE INJECTION, USP (0033-10) [Suspect]
     Active Substance: NEOSTIGMINE METHYLSULFATE
     Dosage: DOSE UNKNOWN
     Route: 065

REACTIONS (4)
  - Bradycardia [Recovered/Resolved]
  - Stress cardiomyopathy [Recovered/Resolved]
  - Hypotension [Recovered/Resolved]
  - Atrioventricular block complete [Recovered/Resolved]
